FAERS Safety Report 18163098 (Version 1)
Quarter: 2020Q3

REPORT INFORMATION
  Report Type: Spontaneous
  Country: CA (occurrence: CA)
  Receive Date: 20200818
  Receipt Date: 20200818
  Transmission Date: 20201103
  Serious: Yes (Other)
  Sender: FDA-Public Use
  Company Number: CA-ACCORD-195581

PATIENT
  Age: 29 Year
  Sex: Male
  Weight: 97 kg

DRUGS (3)
  1. EPIRUBICIN [Suspect]
     Active Substance: EPIRUBICIN
     Indication: PRODUCT USED FOR UNKNOWN INDICATION
  2. XELODA [Suspect]
     Active Substance: CAPECITABINE
     Indication: PRODUCT USED FOR UNKNOWN INDICATION
     Route: 048
  3. CISPLATIN. [Suspect]
     Active Substance: CISPLATIN
     Indication: PRODUCT USED FOR UNKNOWN INDICATION

REACTIONS (3)
  - Pain in extremity [Recovered/Resolved]
  - Thrombosis [Recovered/Resolved]
  - Back pain [Recovered/Resolved]
